FAERS Safety Report 5947564-4 (Version None)
Quarter: 2008Q4

REPORT INFORMATION
  Report Type: 
  Country: None (occurrence: None)
  Receive Date: 20081110
  Receipt Date: 20081106
  Transmission Date: 20090506
  Serious: Yes (Hospitalization)
  Sender: FDA-Public Use
  Company Number: PHHO2003US09700

PATIENT
  Sex: Female
  Weight: 63 kg

DRUGS (3)
  1. TRILEPTAL [Suspect]
     Indication: BIPOLAR DISORDER
     Dosage: 900 MG
     Route: 048
     Dates: start: 20030722, end: 20030727
  2. CONCERTA [Concomitant]
     Indication: ATTENTION DEFICIT/HYPERACTIVITY DISORDER
     Dosage: 36 MG, QD
     Route: 048
     Dates: start: 20030619
  3. CONCERTA [Concomitant]
     Dosage: 19 MG, QD
     Route: 048

REACTIONS (8)
  - AGGRESSION [None]
  - BIPOLAR DISORDER [None]
  - CONDITION AGGRAVATED [None]
  - DRUG INEFFECTIVE [None]
  - MENTAL DISORDER [None]
  - OBSESSIVE THOUGHTS [None]
  - PERSEVERATION [None]
  - SLEEP DISORDER [None]
